FAERS Safety Report 22318451 (Version 4)
Quarter: 2023Q2

REPORT INFORMATION
  Report Type: Report from Study
  Country: US (occurrence: US)
  Receive Date: 20230515
  Receipt Date: 20230524
  Transmission Date: 20230721
  Serious: No
  Sender: FDA-Public Use
  Company Number: US-002147023-NVSC2023US107650

PATIENT
  Sex: Female
  Weight: 98 kg

DRUGS (10)
  1. COSENTYX [Suspect]
     Active Substance: SECUKINUMAB
     Indication: Psoriatic arthropathy
     Dosage: 300 MG, QMO
     Route: 065
  2. COSENTYX [Suspect]
     Active Substance: SECUKINUMAB
     Dosage: 300 MG (150 MG 2 PENS)
     Route: 058
  3. METHOTREXATE [Suspect]
     Active Substance: METHOTREXATE
     Indication: Psoriatic arthropathy
     Dosage: 3 DOSAGE FORM, QW
     Route: 065
  4. METHOTREXATE [Suspect]
     Active Substance: METHOTREXATE
     Dosage: 2.5 MG
     Route: 048
  5. PREDNISONE [Suspect]
     Active Substance: PREDNISONE
     Indication: Psoriatic arthropathy
     Dosage: 5 MG, QD (AS NEEDED)
     Route: 048
  6. DULOXETINE HYDROCHLORIDE [Suspect]
     Active Substance: DULOXETINE HYDROCHLORIDE
     Indication: Psoriatic arthropathy
     Dosage: 20 MG, QD
     Route: 048
     Dates: start: 20221110
  7. DICLOFENAC [Suspect]
     Active Substance: DICLOFENAC
     Indication: Psoriatic arthropathy
     Dosage: UNK
     Route: 065
  8. FOLIC ACID [Suspect]
     Active Substance: FOLIC ACID
     Indication: Psoriatic arthropathy
     Dosage: 1 MG, QD
     Route: 048
  9. BIOTIN [Suspect]
     Active Substance: BIOTIN
     Indication: Psoriatic arthropathy
     Dosage: UNK
     Route: 065
  10. MINERALS\VITAMINS [Suspect]
     Active Substance: MINERALS\VITAMINS
     Indication: Psoriatic arthropathy
     Dosage: UNK
     Route: 065

REACTIONS (7)
  - Arthralgia [Unknown]
  - Osteoarthritis [Unknown]
  - Musculoskeletal stiffness [Unknown]
  - Myalgia [Unknown]
  - Dactylitis [Recovering/Resolving]
  - Psoriasis [Unknown]
  - Treatment failure [Unknown]
